FAERS Safety Report 5331982-1 (Version None)
Quarter: 2007Q2

REPORT INFORMATION
  Report Type: 
  Country: None (occurrence: None)
  Receive Date: 20070306
  Receipt Date: 20060504
  Transmission Date: 20071010
  Serious: Yes (Disabling)
  Sender: FDA-Public Use
  Company Number: A03200602913

PATIENT
  Age: 84 Year
  Sex: Male
  Weight: 102.0593 kg

DRUGS (10)
  1. PLAVIX [Suspect]
     Indication: COAGULOPATHY
     Dosage: 75 MG QD - ORAL
     Route: 048
     Dates: start: 20030101
  2. PLAVIX [Suspect]
  3. FUROSEMIDE [Concomitant]
  4. FELODIPINE [Concomitant]
  5. ROSIGLITAZONE [Concomitant]
  6. LEVOTHYROXINE SODIUM [Concomitant]
  7. OMEPRAZOLE [Concomitant]
  8. METOPROLOL SUCCINATE [Concomitant]
  9. SIMVASTATIN [Concomitant]
  10. RAMIPRIL [Concomitant]

REACTIONS (2)
  - OEDEMA PERIPHERAL [None]
  - PAIN IN EXTREMITY [None]
